FAERS Safety Report 7980747-0 (Version None)
Quarter: 2011Q4

REPORT INFORMATION
  Report Type: 
  Country: None (occurrence: None)
  Receive Date: 20111214
  Receipt Date: 20111202
  Transmission Date: 20120403
  Serious: Yes (Hospitalization, Other)
  Sender: FDA-Public Use
  Company Number: US-ELI_LILLY_AND_COMPANY-US201009006050

PATIENT
  Sex: Female

DRUGS (7)
  1. ALLEGRA [Concomitant]
  2. FORTEO [Suspect]
     Dosage: 20 UG, QD
  3. TIAZAC [Concomitant]
  4. COUMADIN [Concomitant]
  5. PRILOSEC [Concomitant]
  6. FORTEO [Suspect]
     Indication: OSTEOPOROSIS
     Dosage: 20 UG, DAILY (1/D)
     Dates: start: 20100701
  7. VITAMIN TAB [Concomitant]

REACTIONS (6)
  - FALL [None]
  - FRACTURED COCCYX [None]
  - UPPER LIMB FRACTURE [None]
  - HIP FRACTURE [None]
  - WRIST FRACTURE [None]
  - ULNA FRACTURE [None]
